FAERS Safety Report 6575694-5 (Version None)
Quarter: 2010Q1

REPORT INFORMATION
  Report Type: 
  Country: None (occurrence: None)
  Receive Date: 20100208
  Receipt Date: 20100208
  Transmission Date: 20100710
  Serious: Yes (Other)
  Sender: FDA-Public Use
  Company Number: None

PATIENT
  Age: 53 Year
  Sex: Female

DRUGS (1)
  1. LEVAQUIN [Suspect]
     Indication: ANIMAL BITE
     Dosage: 1 PILL DAILY PO
     Route: 048
     Dates: start: 20100109, end: 20100119

REACTIONS (6)
  - ARTHRALGIA [None]
  - ECONOMIC PROBLEM [None]
  - EMOTIONAL DISTRESS [None]
  - IMPAIRED DRIVING ABILITY [None]
  - IMPAIRED WORK ABILITY [None]
  - TENDON DISORDER [None]
